FAERS Safety Report 8918092 (Version 2)
Quarter: 2012Q4

REPORT INFORMATION
  Report Type: 
  Country: KR (occurrence: KR)
  Receive Date: 20121120
  Receipt Date: 20121128
  Transmission Date: 20130627
  Serious: Yes (Other)
  Sender: FDA-Public Use
  Company Number: PHHY2012KR104932

PATIENT
  Age: 72 Year
  Sex: Male

DRUGS (3)
  1. AMOXICILLIN [Suspect]
     Indication: HELICOBACTER INFECTION
     Dosage: 1000 mg, UNK
  2. CLARITHROMYCIN [Suspect]
     Indication: HELICOBACTER INFECTION
     Dosage: 500 mg, UNK
  3. OMEPRAZOLE [Suspect]
     Indication: HELICOBACTER INFECTION
     Dosage: 20 mg, BID

REACTIONS (4)
  - Gastrooesophageal reflux disease [Unknown]
  - Dysphagia [Unknown]
  - Regurgitation [Unknown]
  - Dyspepsia [Unknown]
